FAERS Safety Report 9017971 (Version 4)
Quarter: 2013Q2

REPORT INFORMATION
  Report Type: Spontaneous
  Country: BR (occurrence: BR)
  Receive Date: 20130118
  Receipt Date: 20130625
  Transmission Date: 20140414
  Serious: Yes (Other)
  Sender: FDA-Public Use
  Company Number: BR-AMGEN-US444777

PATIENT
  Age: 43 Year
  Sex: Male
  Weight: 63 kg

DRUGS (13)
  1. ENBREL [Suspect]
     Indication: ANKYLOSING SPONDYLITIS
     Dosage: 50 MG, QWK
     Route: 058
     Dates: start: 2008
  2. ENBREL [Suspect]
     Dosage: 50 MG, QWK
     Route: 058
  3. AMITRIPTYLINE [Concomitant]
     Dosage: UNK
  4. CLONAZEPAM [Concomitant]
     Dosage: UNK
     Route: 065
  5. CYCLOBENZAPRINE [Concomitant]
     Dosage: UNK
  6. FAMOTIDINE [Concomitant]
     Dosage: UNK
  7. FOLIC ACID [Concomitant]
     Dosage: UNK
     Route: 065
  8. INDOMETACIN [Concomitant]
     Dosage: UNK
  9. METHOTREXATE [Concomitant]
     Indication: SPONDYLITIS
     Dosage: UNK
     Route: 065
  10. ACETAMINOPHEN [Concomitant]
     Dosage: UNK
  11. RESFENOL [Concomitant]
     Dosage: 400 MG, 3X/DAY (EVERY 8 HOURS)
  12. LYRICA [Concomitant]
     Indication: PAIN
     Dosage: UNK UNK, AS NECESSARY
  13. RIVOTRIL [Concomitant]
     Indication: SLEEP DISORDER
     Dosage: UNK, ONE TO SLEEP

REACTIONS (24)
  - Pyrexia [Recovered/Resolved]
  - Renal cyst [Unknown]
  - Anal haemorrhage [Recovering/Resolving]
  - Epistaxis [Recovering/Resolving]
  - Food craving [Unknown]
  - Anal fissure [Unknown]
  - Mental disorder [Unknown]
  - Blood pressure increased [Recovered/Resolved]
  - Headache [Unknown]
  - Weight increased [Unknown]
  - Nausea [Unknown]
  - Decreased appetite [Unknown]
  - Weight decreased [Unknown]
  - Fear [Unknown]
  - Disturbance in social behaviour [Unknown]
  - Blood pressure abnormal [Recovered/Resolved]
  - Stress [Recovered/Resolved]
  - Alanine aminotransferase abnormal [Unknown]
  - Nasopharyngitis [Unknown]
  - Injection site pain [Unknown]
  - Influenza [Unknown]
  - Rhinitis [Unknown]
  - Aspartate aminotransferase increased [Recovered/Resolved]
  - Incorrect route of drug administration [Unknown]
